FAERS Safety Report 24657442 (Version 1)
Quarter: 2024Q4

REPORT INFORMATION
  Report Type: Spontaneous
  Country: US (occurrence: US)
  Receive Date: 20241125
  Receipt Date: 20241125
  Transmission Date: 20250114
  Serious: No
  Sender: ELI LILLY AND COMPANY
  Company Number: US-ELI_LILLY_AND_COMPANY-US202411013863

PATIENT
  Age: 70 Year
  Sex: Female

DRUGS (2)
  1. TALTZ [Suspect]
     Active Substance: IXEKIZUMAB
     Indication: Psoriasis
     Dosage: 80 MG, UNKNOWN
     Route: 065
  2. TALTZ [Suspect]
     Active Substance: IXEKIZUMAB
     Dosage: 80 MG, UNKNOWN
     Route: 065

REACTIONS (7)
  - Abdominal pain upper [Recovering/Resolving]
  - Feeding disorder [Recovering/Resolving]
  - Dizziness [Recovering/Resolving]
  - Laziness [Recovering/Resolving]
  - Asthenia [Recovering/Resolving]
  - Feeling hot [Recovering/Resolving]
  - Nausea [Recovering/Resolving]
